FAERS Safety Report 12200407 (Version 2)
Quarter: 2016Q2

REPORT INFORMATION
  Report Type: Spontaneous
  Country: JP (occurrence: JP)
  Receive Date: 20160322
  Receipt Date: 20160406
  Transmission Date: 20160815
  Serious: Yes (Hospitalization)
  Sender: FDA-Public Use
  Company Number: JP-009507513-1603JPN009335

PATIENT
  Age: 60 Year
  Sex: Male

DRUGS (10)
  1. SIGMART [Concomitant]
     Active Substance: NICORANDIL
     Dosage: DAILY DOSAGE UNKNOWN, FORMULATION: POR (OTHER PERORAL FORMULATION)
     Route: 048
  2. DIOVAN [Concomitant]
     Active Substance: VALSARTAN
     Dosage: DAILY DOSAGE UNKNOWN, FORMULATION: POR (OTHER PERORAL FORMULATION)
     Route: 048
  3. BASEN [Concomitant]
     Active Substance: VOGLIBOSE
     Indication: DIABETES MELLITUS
     Dosage: 0.2 MG, TID
     Route: 048
     Dates: start: 2014, end: 20160321
  4. ITOROL [Concomitant]
     Active Substance: ISOSORBIDE MONONITRATE
     Dosage: DAILY DOSAGE UNKNOWN, FORMULATION: POR (OTHER PERORAL FORMULATION)
     Route: 048
  5. ADALAT [Concomitant]
     Active Substance: NIFEDIPINE
     Dosage: DAILY DOSAGE UNKNOWN, FORMULATION: POR (OTHER PERORAL FORMULATION)
     Route: 048
  6. MAINTATE [Concomitant]
     Active Substance: BISOPROLOL FUMARATE
     Dosage: DAILY DOSAGE UNKNOWN, FORMULATION: POR (OTHER PERORAL FORMULATION)
     Route: 048
  7. JANUVIA [Suspect]
     Active Substance: SITAGLIPTIN PHOSPHATE
     Indication: DIABETES MELLITUS
     Dosage: 50 MG, QD
     Route: 048
     Dates: start: 2011, end: 20160321
  8. CRESTOR [Concomitant]
     Active Substance: ROSUVASTATIN CALCIUM
     Dosage: DAILY DOSAGE UNKNOWN, FORMULATION: POR (OTHER PERORAL FORMULATION)
     Route: 048
  9. METGLUCO [Concomitant]
     Active Substance: METFORMIN HYDROCHLORIDE
     Indication: DIABETES MELLITUS
     Dosage: 250 MG, BID
     Route: 048
     Dates: start: 2014, end: 201603
  10. ELIQUIS [Concomitant]
     Active Substance: APIXABAN
     Dosage: DAILY DOSAGE UNKNOWN, FORMULATION: POR (OTHER PERORAL FORMULATION)
     Route: 048

REACTIONS (1)
  - Coronary artery stenosis [Unknown]
